FAERS Safety Report 8525617-4 (Version None)
Quarter: 2012Q3

REPORT INFORMATION
  Report Type: 
  Country: None (occurrence: None)
  Receive Date: 20120720
  Receipt Date: 20120710
  Transmission Date: 20120928
  Serious: Yes (Other)
  Sender: FDA-Public Use
  Company Number: JP-VERTEX PHARMACEUTICALS INC.-AE-2012-007803

PATIENT
  Age: 48 Year
  Sex: Male

DRUGS (9)
  1. OXATOMIDE [Concomitant]
     Route: 048
     Dates: start: 20120407
  2. TELAVIC (TELAPREVIR) [Suspect]
     Indication: HEPATITIS C
     Route: 048
     Dates: start: 20120407, end: 20120630
  3. LENDORMIN [Concomitant]
     Route: 048
  4. IBRUPROFEN [Concomitant]
     Route: 048
     Dates: start: 20120407
  5. PEGINTERFERON ALFA-2B [Concomitant]
     Indication: HEPATITIS C
     Route: 058
     Dates: start: 20120407, end: 20120609
  6. RIBAVIRIN [Concomitant]
     Indication: HEPATITIS C
     Route: 048
     Dates: start: 20120407, end: 20120512
  7. RIBAVIRIN [Concomitant]
     Route: 048
     Dates: start: 20120512
  8. LANSOPRAZOLE [Concomitant]
     Route: 048
  9. PEGINTERFERON ALFA-2B [Concomitant]
     Route: 058
     Dates: start: 20120616

REACTIONS (1)
  - NEUTROPHIL COUNT DECREASED [None]
